FAERS Safety Report 19998999 (Version 1)
Quarter: 2021Q4

REPORT INFORMATION
  Report Type: Spontaneous
  Country: US (occurrence: US)
  Receive Date: 20211027
  Receipt Date: 20211027
  Transmission Date: 20220304
  Serious: No
  Sender: FDA-Public Use
  Company Number: US-AMGEN-USASP2021161978

PATIENT
  Sex: Male

DRUGS (1)
  1. REPATHA [Suspect]
     Active Substance: EVOLOCUMAB
     Indication: Aortic valve disease
     Dosage: 140 MILLIGRAM, Q2WK
     Route: 058
     Dates: start: 20190204

REACTIONS (1)
  - Product dose omission issue [Recovered/Resolved]
